FAERS Safety Report 7677762-3 (Version None)
Quarter: 2011Q3

REPORT INFORMATION
  Report Type: 
  Country: None (occurrence: None)
  Receive Date: 20110811
  Receipt Date: 20110809
  Transmission Date: 20111222
  Serious: Yes (Hospitalization)
  Sender: FDA-Public Use
  Company Number: US-PFIZER INC-2011181440

PATIENT
  Age: 73 Year
  Sex: Male
  Weight: 60.317 kg

DRUGS (1)
  1. SUNITINIB MALATE [Suspect]

REACTIONS (1)
  - CHEST PAIN [None]
